FAERS Safety Report 12709120 (Version 1)
Quarter: 2016Q3

REPORT INFORMATION
  Report Type: Spontaneous
  Country: None (occurrence: None)
  Receive Date: 20160901
  Receipt Date: 20160901
  Transmission Date: 20161109
  Serious: No
  Sender: FDA-Public Use
  Company Number: None

PATIENT
  Age: 72 Year
  Sex: Male
  Weight: 65.77 kg

DRUGS (1)
  1. FLUTICASONE NASAL SPRAY [Suspect]
     Active Substance: FLUTICASONE\FLUTICASONE PROPIONATE

REACTIONS (3)
  - Accidental underdose [None]
  - Accidental overdose [None]
  - Device malfunction [None]

NARRATIVE: CASE EVENT DATE: 20160831
